FAERS Safety Report 7703125-8 (Version None)
Quarter: 2011Q3

REPORT INFORMATION
  Report Type: 
  Country: None (occurrence: None)
  Receive Date: 20110823
  Receipt Date: 20110808
  Transmission Date: 20111222
  Serious: No
  Sender: FDA-Public Use
  Company Number: US-B.I. PHARMACEUTICALS,INC./RIDGEFIELD-2011-BP-19462BP

PATIENT
  Sex: Male

DRUGS (12)
  1. PRADAXA [Suspect]
     Indication: ATRIAL FIBRILLATION
     Dosage: 300 MG
     Route: 048
     Dates: start: 20110601
  2. PRILOSEC OTC [Concomitant]
     Indication: GASTROOESOPHAGEAL REFLUX DISEASE
     Dosage: 20 MG
     Route: 048
     Dates: start: 20100101
  3. PROVENTIL GENTLEHALER [Concomitant]
     Indication: ASTHMA
     Route: 055
     Dates: start: 20080101
  4. COREG CR [Concomitant]
     Indication: HYPERTENSION
     Dosage: 40 MG
     Route: 048
     Dates: start: 20080101
  5. GLUCOSAMINE SO4 [Concomitant]
     Indication: ARTHRALGIA
     Dosage: 200 MG
     Route: 048
     Dates: start: 20050101
  6. VITAMIN D [Concomitant]
     Indication: ROUTINE HEALTH MAINTENANCE
     Route: 048
     Dates: start: 20100101
  7. LOVAZA [Concomitant]
     Indication: ANTICOAGULANT THERAPY
     Dosage: 4000 MG
     Route: 048
     Dates: start: 20080101
  8. ALLOPURINOL [Concomitant]
     Indication: GOUT
     Dosage: 30 MG
     Route: 048
     Dates: start: 20100101
  9. INDOMETHACIN [Concomitant]
     Indication: CHONDROCALCINOSIS PYROPHOSPHATE
     Route: 048
     Dates: start: 20080101
  10. SPIRONOLACTONE [Concomitant]
     Indication: HYPERTENSION
     Dosage: 25 MG
     Route: 048
     Dates: start: 20080101
  11. NEIL MED SINUS RINSE [Concomitant]
     Indication: SINUS DISORDER
     Dates: start: 20080101
  12. ASCORBIC ACID [Concomitant]
     Indication: ROUTINE HEALTH MAINTENANCE
     Dosage: 500 MG
     Route: 048
     Dates: start: 20080101

REACTIONS (3)
  - ABDOMINAL DISTENSION [None]
  - ABDOMINAL DISCOMFORT [None]
  - NAUSEA [None]
